FAERS Safety Report 8544731-0 (Version None)
Quarter: 2012Q3

REPORT INFORMATION
  Report Type: 
  Country: None (occurrence: None)
  Receive Date: 20120727
  Receipt Date: 20120717
  Transmission Date: 20120928
  Serious: Yes (Hospitalization)
  Sender: FDA-Public Use
  Company Number: GB-TEVA-348733ISR

PATIENT
  Age: 60 Year
  Sex: Male
  Weight: 74 kg

DRUGS (2)
  1. SOTALOL HYDROCHLORIDE [Concomitant]
  2. LEVOTHYROXINE SODIUM [Suspect]
     Indication: THYROID HORMONE REPLACEMENT THERAPY
     Dosage: 150 - 200MG PER DAY
     Route: 048
     Dates: start: 20101001, end: 20110930

REACTIONS (5)
  - BLOOD THYROID STIMULATING HORMONE INCREASED [None]
  - THYROXINE DECREASED [None]
  - PRODUCT SUBSTITUTION ISSUE [None]
  - ATRIAL FIBRILLATION [None]
  - FATIGUE [None]
